FAERS Safety Report 25343249 (Version 3)
Quarter: 2025Q4

REPORT INFORMATION
  Report Type: Spontaneous
  Country: EU (occurrence: EU)
  Receive Date: 20250521
  Receipt Date: 20251121
  Transmission Date: 20260117
  Serious: Yes (Hospitalization)
  Sender: NOVARTIS
  Company Number: EU-002147023-NVSC2025DE081284

PATIENT
  Age: 30 Year
  Sex: Male
  Weight: 90 kg

DRUGS (1)
  1. KESIMPTA [Suspect]
     Active Substance: OFATUMUMAB
     Indication: Multiple sclerosis
     Dosage: 20 MG, Q4W
     Route: 065
     Dates: start: 202311

REACTIONS (12)
  - Anaphylactic shock [Recovered/Resolved]
  - Asthma [Unknown]
  - Oropharyngeal discomfort [Unknown]
  - Erythema [Unknown]
  - Hyperventilation [Unknown]
  - Respiratory distress [Unknown]
  - Dyspnoea [Unknown]
  - Wheezing [Unknown]
  - Oedema [Unknown]
  - Muscle spasms [Unknown]
  - Swelling [Unknown]
  - Hypersensitivity [Recovered/Resolved]
